FAERS Safety Report 9469289 (Version 3)
Quarter: 2013Q3

REPORT INFORMATION
  Report Type: Spontaneous
  Country: US (occurrence: None)
  Receive Date: 20130815
  Receipt Date: 20130916
  Transmission Date: 20140515
  Serious: Yes (Death, Hospitalization, Disabling)
  Sender: FDA-Public Use
  Company Number: ACO_37880_2013

PATIENT
  Age: 62 Year
  Sex: Male
  Weight: 82.5 kg

DRUGS (2)
  1. AMPYRA (DALFAMPRIDINE) TABLET, 10 MG [Suspect]
     Indication: MULTIPLE SCLEROSIS
     Dates: start: 20130513
  2. TECFIDERA (DIMETHYL FUMARATE) [Concomitant]

REACTIONS (5)
  - Death [None]
  - General physical health deterioration [None]
  - Chest pain [None]
  - Pneumonia [None]
  - Drug dose omission [None]
